FAERS Safety Report 5193027-6 (Version None)
Quarter: 2006Q4

REPORT INFORMATION
  Report Type: 
  Country: None (occurrence: None)
  Receive Date: 20061228
  Receipt Date: 20060228
  Transmission Date: 20070319
  Serious: No
  Sender: FDA-Public Use
  Company Number: US-GLAXOSMITHKLINE-A0595960A

PATIENT
  Sex: Male

DRUGS (3)
  1. AVODART [Suspect]
     Route: 048
  2. FLOMAX [Suspect]
  3. ENALAPRIL MALEATE [Concomitant]

REACTIONS (3)
  - BLOOD PROLACTIN INCREASED [None]
  - DRUG INEFFECTIVE [None]
  - POLLAKIURIA [None]
